FAERS Safety Report 23718664 (Version 1)
Quarter: 2024Q2

REPORT INFORMATION
  Report Type: Spontaneous
  Country: US (occurrence: None)
  Receive Date: 20240406
  Receipt Date: 20240406
  Transmission Date: 20240715
  Serious: No
  Sender: FDA-Public Use
  Company Number: None

PATIENT
  Age: 70 Year
  Sex: Male
  Weight: 94.9 kg

DRUGS (1)
  1. CISPLATIN [Suspect]
     Active Substance: CISPLATIN

REACTIONS (8)
  - Influenza [None]
  - Myelosuppression [None]
  - Treatment failure [None]
  - Central nervous system neoplasm [None]
  - Bacterial sepsis [None]
  - Septic shock [None]
  - Multiple organ dysfunction syndrome [None]
  - Disseminated intravascular coagulation [None]

NARRATIVE: CASE EVENT DATE: 20240404
